FAERS Safety Report 12722618 (Version 1)
Quarter: 2016Q3

REPORT INFORMATION
  Report Type: Report from Study
  Country: US (occurrence: US)
  Receive Date: 20160907
  Receipt Date: 20160907
  Transmission Date: 20161109
  Serious: Yes (Death, Other)
  Sender: FDA-Public Use
  Company Number: US-ROCHE-1827207

PATIENT
  Age: 8 Year
  Sex: Male
  Weight: 21.2 kg

DRUGS (1)
  1. BEVACIZUMAB [Suspect]
     Active Substance: BEVACIZUMAB
     Indication: MEDULLOBLASTOMA
     Dosage: (FREQUENCY AS PER PROTOCOL)
     Route: 042
     Dates: start: 20120507, end: 20120618

REACTIONS (6)
  - Neutrophil count decreased [Unknown]
  - White blood cell count decreased [Unknown]
  - Death [Fatal]
  - Anaemia [Unknown]
  - Platelet count decreased [Unknown]
  - Lymphocyte count decreased [Unknown]

NARRATIVE: CASE EVENT DATE: 20130316
